FAERS Safety Report 17217112 (Version 2)
Quarter: 2022Q4

REPORT INFORMATION
  Report Type: Spontaneous
  Country: NO (occurrence: NO)
  Receive Date: 20191231
  Receipt Date: 20221021
  Transmission Date: 20230113
  Serious: Yes (Hospitalization, Other)
  Sender: FDA-Public Use
  Company Number: NO-ALKEM LABORATORIES LIMITED-NO-ALKEM-2019-11027

PATIENT
  Age: 17 Day

DRUGS (1)
  1. LAMOTRIGINE [Suspect]
     Active Substance: LAMOTRIGINE
     Indication: Product used for unknown indication
     Dosage: UNK
     Route: 063

REACTIONS (5)
  - Cyanosis [Unknown]
  - Drug level above therapeutic [Unknown]
  - Apnoea [Unknown]
  - Exposure via breast milk [Unknown]
  - Foetal exposure during pregnancy [Unknown]
